FAERS Safety Report 4366199-0 (Version None)
Quarter: 2004Q2

REPORT INFORMATION
  Report Type: 
  Country: None (occurrence: None)
  Receive Date: 20040527
  Receipt Date: 20040213
  Transmission Date: 20050107
  Serious: No
  Sender: FDA-Public Use
  Company Number: US-BRISTOL-MYERS SQUIBB COMPANY-12509220

PATIENT
  Age: 67 Year
  Sex: Female

DRUGS (1)
  1. DEFINITY [Suspect]
     Dosage: GIVEN AN ADDITIONAL .1 ML FOLLOWING THE EVENT

REACTIONS (1)
  - BACK PAIN [None]
